FAERS Safety Report 7509845-2 (Version None)
Quarter: 2011Q2

REPORT INFORMATION
  Report Type: 
  Country: None (occurrence: None)
  Receive Date: 20110527
  Receipt Date: 20110526
  Transmission Date: 20111010
  Serious: Yes (Life-Threatening)
  Sender: FDA-Public Use
  Company Number: B0662593A

PATIENT
  Sex: Female

DRUGS (2)
  1. AMPICILLIN SODIUM [Concomitant]
     Route: 042
  2. CEFTAZIDIME [Suspect]
     Route: 042

REACTIONS (7)
  - RASH [None]
  - ANAPHYLACTIC REACTION [None]
  - URTICARIA [None]
  - USE OF ACCESSORY RESPIRATORY MUSCLES [None]
  - CYANOSIS [None]
  - ANGIOEDEMA [None]
  - WHEEZING [None]
